FAERS Safety Report 10677243 (Version 2)
Quarter: 2015Q2

REPORT INFORMATION
  Report Type: Spontaneous
  Country: JP (occurrence: JP)
  Receive Date: 20141226
  Receipt Date: 20150507
  Transmission Date: 20150821
  Serious: Yes (Other)
  Sender: FDA-Public Use
  Company Number: PHHY2014JP168372

PATIENT
  Age: 66 Year
  Sex: Female

DRUGS (5)
  1. AFINITOR [Suspect]
     Active Substance: EVEROLIMUS
     Indication: BREAST CANCER METASTATIC
     Dosage: UNK
     Route: 048
     Dates: start: 201003, end: 201004
  2. AFINITOR [Suspect]
     Active Substance: EVEROLIMUS
     Dosage: RESUMED AT REDUCED DOSE
     Route: 048
     Dates: start: 201004
  3. AFINITOR [Suspect]
     Active Substance: EVEROLIMUS
     Dosage: UNK
     Route: 048
     Dates: start: 201005, end: 20100729
  4. AFINITOR [Suspect]
     Active Substance: EVEROLIMUS
     Dosage: 5 MG, QD
     Route: 048
     Dates: start: 20100830, end: 20110207
  5. EXEMESTANE. [Suspect]
     Active Substance: EXEMESTANE
     Indication: BREAST CANCER METASTATIC
     Route: 048
     Dates: start: 201003, end: 20110207

REACTIONS (7)
  - Malignant neoplasm progression [Unknown]
  - Stomatitis [Recovering/Resolving]
  - Pyrexia [Recovering/Resolving]
  - Metastases to lymph nodes [Unknown]
  - Paralysis [Unknown]
  - Interstitial lung disease [Recovering/Resolving]
  - Pulmonary cavitation [Unknown]

NARRATIVE: CASE EVENT DATE: 201004
